FAERS Safety Report 7027083-7 (Version None)
Quarter: 2010Q4

REPORT INFORMATION
  Report Type: 
  Country: None (occurrence: None)
  Receive Date: 20101004
  Receipt Date: 20100929
  Transmission Date: 20110411
  Serious: Yes (Congenital Anomaly)
  Sender: FDA-Public Use
  Company Number: US-GILEAD-2010-0032207

PATIENT
  Age: 1 Day
  Sex: Male
  Weight: 3.143 kg

DRUGS (2)
  1. TRUVADA [Suspect]
     Indication: HEPATITIS B
     Route: 064
     Dates: end: 20091221
  2. VIREAD [Suspect]
     Indication: HEPATITIS B
     Route: 064

REACTIONS (1)
  - HERNIA [None]
